FAERS Safety Report 7099443-X (Version None)
Quarter: 2010Q4

REPORT INFORMATION
  Report Type: 
  Country: None (occurrence: None)
  Receive Date: 20101112
  Receipt Date: 20081010
  Transmission Date: 20110411
  Serious: No
  Sender: FDA-Public Use
  Company Number: US-KINGPHARMUSA00001-K200801194

PATIENT
  Age: 40 Year
  Sex: Female
  Weight: 63.492 kg

DRUGS (4)
  1. LEVOXYL [Suspect]
     Indication: HYPOTHYROIDISM
     Dosage: 125 MCG, QD
     Route: 048
     Dates: start: 20070101, end: 20081009
  2. LEVOXYL [Suspect]
     Dosage: 25 MCG, QD
     Route: 048
     Dates: start: 20040101
  3. AVALIDE [Concomitant]
     Indication: HYPERTENSION
     Dosage: UNK, QD
     Route: 048
  4. VITAMINS                           /90003601/ [Concomitant]
     Indication: SUPPLEMENTATION THERAPY
     Dosage: UNK, PRN
     Route: 048

REACTIONS (8)
  - BLOOD THYROID STIMULATING HORMONE INCREASED [None]
  - DRUG INEFFECTIVE [None]
  - EYE IRRITATION [None]
  - EYE SWELLING [None]
  - FATIGUE [None]
  - JOINT STIFFNESS [None]
  - OEDEMA PERIPHERAL [None]
  - WEIGHT INCREASED [None]
